FAERS Safety Report 25956331 (Version 1)
Quarter: 2025Q4

REPORT INFORMATION
  Report Type: Spontaneous
  Country: US (occurrence: US)
  Receive Date: 20251024
  Receipt Date: 20251024
  Transmission Date: 20260117
  Serious: No
  Sender: Vantive US Healthcare
  Company Number: US-VANTIVE-2025VAN004909

PATIENT
  Age: 59 Year
  Sex: Male
  Weight: 100 kg

DRUGS (1)
  1. DIANEAL [Suspect]
     Active Substance: CALCIUM CHLORIDE\DEXTROSE\MAGNESIUM CHLORIDE\SODIUM CHLORIDE\SODIUM LACTATE
     Route: 033

REACTIONS (3)
  - Respiratory disorder [Unknown]
  - Abdominal discomfort [Unknown]
  - Abdominal distension [Unknown]

NARRATIVE: CASE EVENT DATE: 20251010
